FAERS Safety Report 4453821-3 (Version None)
Quarter: 2004Q3

REPORT INFORMATION
  Report Type: 
  Country: None (occurrence: None)
  Receive Date: 20040920
  Receipt Date: 20040316
  Transmission Date: 20050211
  Serious: Yes (Hospitalization)
  Sender: FDA-Public Use
  Company Number: US-ROCHE-361714

PATIENT
  Age: 25 Year
  Sex: Male
  Weight: 56.8 kg

DRUGS (3)
  1. MYCOPHENOLATE MOFETIL [Suspect]
     Route: 048
     Dates: start: 20020918
  2. MYCOPHENOLATE MOFETIL [Suspect]
     Route: 048
     Dates: start: 20010925
  3. NEORAL [Concomitant]

REACTIONS (8)
  - ANAEMIA [None]
  - BONE MARROW DEPRESSION [None]
  - CARDIOMEGALY [None]
  - GASTRITIS HAEMORRHAGIC [None]
  - GRAFT LOSS [None]
  - OESOPHAGITIS [None]
  - PULMONARY HYPERTENSION [None]
  - RENAL FAILURE [None]
